FAERS Safety Report 8552255-X (Version None)
Quarter: 2012Q3

REPORT INFORMATION
  Report Type: 
  Country: None (occurrence: None)
  Receive Date: 20120731
  Receipt Date: 20120719
  Transmission Date: 20120928
  Serious: Yes (Hospitalization)
  Sender: FDA-Public Use
  Company Number: US-BRISTOL-MYERS SQUIBB COMPANY-16784076

PATIENT
  Age: 70 Year
  Sex: Female
  Weight: 56 kg

DRUGS (2)
  1. SPRYCEL [Suspect]
     Indication: OVARIAN CANCER
     Dosage: HELD FROM 01-APR-2012 TO 08-APR-2012 FOR SEVEN DAYS; LAST DOSE ON 12JUN2012 COURSES:6
     Route: 048
     Dates: start: 20120109
  2. RHUMAB-VEGF [Suspect]
     Indication: OVARIAN CANCER
     Dosage: LAST DOSE ON 04JUN2012 COURSES:6
     Route: 042
     Dates: start: 20120109

REACTIONS (1)
  - SMALL INTESTINAL OBSTRUCTION [None]
